FAERS Safety Report 4758346-3 (Version None)
Quarter: 2005Q3

REPORT INFORMATION
  Report Type: 
  Country: None (occurrence: None)
  Receive Date: 20050826
  Receipt Date: 20050511
  Transmission Date: 20060218
  Serious: No
  Sender: FDA-Public Use
  Company Number: WAES 0505USA01427

PATIENT
  Age: 66 Year
  Sex: Male

DRUGS (4)
  1. ZETIA [Suspect]
     Indication: BLOOD CHOLESTEROL INCREASED
     Dosage: 10MG/DAILY/PO
     Route: 048
     Dates: start: 20041101
  2. CYMBALTA [Concomitant]
  3. FLOMAX (MORNIFLUMATE) [Concomitant]
  4. PRILOSEC [Concomitant]

REACTIONS (1)
  - WEIGHT INCREASED [None]
